FAERS Safety Report 4819481-4 (Version None)
Quarter: 2005Q4

REPORT INFORMATION
  Report Type: 
  Country: None (occurrence: None)
  Receive Date: 20051031
  Receipt Date: 20050706
  Transmission Date: 20060501
  Serious: No
  Sender: FDA-Public Use
  Company Number: 2005PV000272

PATIENT
  Age: 56 Year
  Sex: Female
  Weight: 148.7798 kg

DRUGS (13)
  1. SYMLIN [Suspect]
     Indication: DIABETES MELLITUS
     Dosage: SEE IMAGE
     Route: 058
     Dates: start: 20050629
  2. DIOVAN HCT [Concomitant]
  3. DILTIAZEM [Concomitant]
  4. CLONIDINE [Concomitant]
  5. METOCLOPRAMIDE [Concomitant]
  6. LIPITOR [Concomitant]
  7. ADVAIR DISKUS 100/50 [Concomitant]
  8. ALBUTEROL [Concomitant]
  9. ASPIRIN [Concomitant]
  10. CALCIUM GLUCONATE [Concomitant]
  11. GARLIC [Concomitant]
  12. AVANDIA [Concomitant]
  13. HUMALOG MIX 25 [Concomitant]

REACTIONS (2)
  - DRUG INEFFECTIVE [None]
  - NAUSEA [None]
